FAERS Safety Report 7665047-0 (Version None)
Quarter: 2011Q3

REPORT INFORMATION
  Report Type: 
  Country: None (occurrence: None)
  Receive Date: 20110806
  Receipt Date: 20110215
  Transmission Date: 20111222
  Serious: No
  Sender: FDA-Public Use
  Company Number: US-ABBOTT-11P-163-0705357-00

PATIENT
  Sex: Male
  Weight: 70.37 kg

DRUGS (2)
  1. ASPIRIN [Concomitant]
     Indication: PRODUCT USED FOR UNKNOWN INDICATION
  2. NIASPAN [Suspect]
     Indication: ARTERIOSCLEROSIS

REACTIONS (4)
  - NERVOUSNESS [None]
  - PARAESTHESIA [None]
  - FLUSHING [None]
  - INSOMNIA [None]
